FAERS Safety Report 19900582 (Version 1)
Quarter: 2021Q3

REPORT INFORMATION
  Report Type: Spontaneous
  Country: US (occurrence: US)
  Receive Date: 20210930
  Receipt Date: 20210930
  Transmission Date: 20211014
  Serious: No
  Sender: FDA-Public Use
  Company Number: None

PATIENT
  Age: 80 Year
  Sex: Female
  Weight: 70.2 kg

DRUGS (10)
  1. CALCIUM [Concomitant]
     Active Substance: CALCIUM
  2. CHONDROITIN?GLUCOSAMINE [Concomitant]
  3. FUROSEMIDE. [Concomitant]
     Active Substance: FUROSEMIDE
  4. HYDROCHLOROTHIAZIDE. [Concomitant]
     Active Substance: HYDROCHLOROTHIAZIDE
  5. LISINOPRIL. [Concomitant]
     Active Substance: LISINOPRIL
  6. VITAMIN D [Concomitant]
     Active Substance: VITAMIN D NOS
  7. XGEVA [Concomitant]
     Active Substance: DENOSUMAB
  8. LOPERAMIDE [Concomitant]
     Active Substance: LOPERAMIDE
  9. POTASSIUM CHLORIDE. [Concomitant]
     Active Substance: POTASSIUM CHLORIDE
  10. CAPECITABINE. [Suspect]
     Active Substance: CAPECITABINE
     Indication: OVARIAN CANCER
     Route: 048
     Dates: start: 20190323

REACTIONS (2)
  - Arthralgia [None]
  - Fatigue [None]

NARRATIVE: CASE EVENT DATE: 20210930
